FAERS Safety Report 17733710 (Version 1)
Quarter: 2020Q2

REPORT INFORMATION
  Report Type: Spontaneous
  Country: US (occurrence: US)
  Receive Date: 20200501
  Receipt Date: 20200501
  Transmission Date: 20200714
  Serious: Yes (Hospitalization, Other)
  Sender: FDA-Public Use
  Company Number: US-ROCHE-2587585

PATIENT
  Age: 83 Year
  Sex: Female

DRUGS (4)
  1. ACTIVASE [Suspect]
     Active Substance: ALTEPLASE
     Dosage: 3 HOURS AFTER 2ND DOSE
     Route: 039
  2. ACTIVASE [Suspect]
     Active Substance: ALTEPLASE
     Indication: CORONAVIRUS INFECTION
     Dosage: 50MG, AT 2MG/ML CONCENTRATION (SO 25ML) SQUIRTED (INSTILLED) DIRECTLY INTO THE ETT PORT WITHIN A CLO
     Route: 039
     Dates: start: 202003
  3. ACTIVASE [Suspect]
     Active Substance: ALTEPLASE
     Dosage: 17 HOURS AFTER 1ST DOSE
     Route: 039
  4. HYPERTONIC SALINE SOLUTION [Concomitant]
     Active Substance: SODIUM CHLORIDE
     Route: 065

REACTIONS (6)
  - Renal failure [Unknown]
  - Superinfection bacterial [Unknown]
  - Haemorrhage [Unknown]
  - Off label use [Unknown]
  - Hypotension [Unknown]
  - Intentional product use issue [Unknown]
